FAERS Safety Report 8934724 (Version 2)
Quarter: 2012Q4

REPORT INFORMATION
  Report Type: 
  Country: ES (occurrence: ES)
  Receive Date: 20121129
  Receipt Date: 20121204
  Transmission Date: 20130627
  Serious: Yes (Hospitalization)
  Sender: FDA-Public Use
  Company Number: ES-UCBSA-071987

PATIENT
  Age: 48 Year
  Sex: Male

DRUGS (5)
  1. CIMZIA [Suspect]
     Indication: RHEUMATOID ARTHRITIS
     Dosage: OTHER BATCH NUMBER: 048545 (EXPIRY DATE: Sep/2012)
     Dates: start: 20120118, end: 20120607
  2. OMEPRAZOLE [Concomitant]
  3. ARCOXIA [Concomitant]
     Dosage: AS REQUIRED
     Route: 048
  4. ARAVA [Concomitant]
     Indication: RHEUMATOID ARTHRITIS
     Route: 048
     Dates: start: 20120607
  5. ZALDIAR [Concomitant]
     Dosage: 37.5 MG/325 MG  AS REQUIRED
     Route: 048

REACTIONS (1)
  - Lobar pneumonia [Recovered/Resolved]
